FAERS Safety Report 7815521-9 (Version None)
Quarter: 2011Q4

REPORT INFORMATION
  Report Type: 
  Country: None (occurrence: None)
  Receive Date: 20111014
  Receipt Date: 20111005
  Transmission Date: 20120403
  Serious: Yes (Death)
  Sender: FDA-Public Use
  Company Number: JP-GENZYME-THYM-1001832

PATIENT
  Sex: Female
  Weight: 39 kg

DRUGS (46)
  1. CIMETIDINE [Concomitant]
     Indication: PROPHYLAXIS
     Dosage: UNK
     Dates: start: 20090629, end: 20090701
  2. METHYLPREDNISOLONE SODIUM SUCCINATE [Concomitant]
     Dosage: 40 MG, QD
     Dates: start: 20090701, end: 20090703
  3. NEUPOGEN [Concomitant]
     Indication: PRODUCT USED FOR UNKNOWN INDICATION
     Dosage: UNK
     Dates: start: 20090625, end: 20090701
  4. ACYCLOVIR [Concomitant]
     Indication: PRODUCT USED FOR UNKNOWN INDICATION
     Dosage: UNK
     Dates: start: 20090624, end: 20090630
  5. DORIPENEM HYDRATE [Concomitant]
     Indication: PRODUCT USED FOR UNKNOWN INDICATION
     Dosage: UNK
     Dates: start: 20090629, end: 20090701
  6. PROPOFOL [Concomitant]
     Dosage: 500 MG, QD
     Dates: start: 20090630, end: 20090630
  7. THYMOGLOBULIN [Suspect]
     Indication: APLASTIC ANAEMIA
     Dosage: 140 MG, QD
     Route: 042
     Dates: start: 20090622, end: 20090626
  8. ITRACONAZOLE [Concomitant]
     Indication: ANTIFUNGAL PROPHYLAXIS
     Dosage: UNK
     Dates: start: 20090609, end: 20090629
  9. ALUMINUM HYDROXIDE GEL [Concomitant]
     Indication: PROPHYLAXIS
     Dosage: UNK
     Dates: start: 20090623, end: 20090713
  10. ATENOLOL [Concomitant]
     Indication: TACHYCARDIA
     Dosage: UNK
     Dates: start: 20090701, end: 20090713
  11. LENOGRASTIM [Concomitant]
     Indication: PRODUCT USED FOR UNKNOWN INDICATION
     Dosage: 250 MCG, QD
     Dates: start: 20090611, end: 20090624
  12. METHYLPREDNISOLONE SODIUM SUCCINATE [Concomitant]
     Dosage: 80 MG, QD
     Dates: start: 20090627, end: 20090629
  13. MANGANESE CHLORIDE_ZINC SULFATE COMBINED DRUG [Concomitant]
     Indication: PRODUCT USED FOR UNKNOWN INDICATION
     Dosage: 2 ML, QD
     Dates: start: 20090630, end: 20090630
  14. CARBENIN [Concomitant]
     Indication: PRODUCT USED FOR UNKNOWN INDICATION
     Dosage: .5 G, BID
     Dates: start: 20090701, end: 20090701
  15. CARBENIN [Concomitant]
     Dosage: .5 G, TID
     Dates: start: 20090702, end: 20090703
  16. FAMOTIDINE [Concomitant]
     Indication: PROPHYLAXIS
     Dosage: 20 MG, QD
     Route: 048
     Dates: start: 20090630, end: 20090630
  17. DIGOXIN [Concomitant]
     Indication: TACHYCARDIA
     Dosage: 0.125 MG, QD
     Dates: start: 20090701, end: 20090713
  18. CEFEPIME HYDROCHLORIDE [Concomitant]
     Dosage: 1 G, BID
     Dates: start: 20090618, end: 20090619
  19. FUROSEMIDE [Concomitant]
     Dosage: 10 MG, QD
     Dates: start: 20090628, end: 20090629
  20. FUROSEMIDE [Concomitant]
     Dosage: 20 MG, QD
     Dates: start: 20090630, end: 20090702
  21. NOREPINEPHRINE BITARTRATE [Concomitant]
     Indication: PRODUCT USED FOR UNKNOWN INDICATION
     Dosage: UNK
     Dates: start: 20090629, end: 20090629
  22. CARBAZOCHROME SODIUM SULFONATE [Concomitant]
     Dosage: 100 MG, UNK
     Dates: start: 20090630, end: 20090630
  23. CARBAZOCHROME SODIUM SULFONATE [Concomitant]
     Dosage: 100 MG, UNK
     Dates: start: 20090703, end: 20090703
  24. HEPARIN SODIUM [Concomitant]
     Indication: PRODUCT USED FOR UNKNOWN INDICATION
     Dosage: UNK
     Dates: start: 20090610, end: 20090628
  25. PREDNISOLONE SODIUM SUCCINATE INJ [Concomitant]
     Dosage: 10 MG, QD
     Dates: start: 20090620, end: 20090621
  26. METHYLPREDNISOLONE SODIUM SUCCINATE [Concomitant]
     Indication: PRODUCT USED FOR UNKNOWN INDICATION
     Dosage: 125 MG, QD
     Dates: start: 20090622, end: 20090626
  27. PROPOFOL [Concomitant]
     Indication: PRODUCT USED FOR UNKNOWN INDICATION
     Dosage: 500 MG, QD
     Dates: start: 20090629, end: 20090629
  28. CARBAZOCHROME SODIUM SULFONATE [Concomitant]
     Dosage: 100 MG, UNK
     Dates: start: 20090629, end: 20090629
  29. REBAMIPIDE [Concomitant]
     Indication: PROPHYLAXIS
     Dosage: UNK
     Dates: start: 20090613, end: 20090622
  30. GARENOXACIN MESYLATE [Concomitant]
     Indication: INFECTION PROPHYLAXIS
     Dosage: UNK
     Dates: start: 20090624, end: 20090702
  31. INSULIN [Concomitant]
     Indication: PRODUCT USED FOR UNKNOWN INDICATION
     Dosage: UNK
     Dates: start: 20090613, end: 20090622
  32. INSULIN [Concomitant]
     Dosage: UNK
     Dates: start: 20090628, end: 20090629
  33. PREDNISOLONE SODIUM SUCCINATE INJ [Concomitant]
     Indication: PRODUCT USED FOR UNKNOWN INDICATION
     Dosage: 20 MG, QD
     Dates: start: 20090618, end: 20090619
  34. MENATETRENONE [Concomitant]
     Indication: HAEMOSTASIS
     Dosage: UNK
     Dates: start: 20090616, end: 20090622
  35. METOCLOPRAMIDE [Concomitant]
     Indication: PRODUCT USED FOR UNKNOWN INDICATION
     Dosage: 10 MG, UNK
     Dates: start: 20090613, end: 20090622
  36. CYCLOSPORINE [Concomitant]
     Indication: PRODUCT USED FOR UNKNOWN INDICATION
     Dosage: UNK
     Route: 048
     Dates: start: 20100615, end: 20100712
  37. CARBAZOCHROME SODIUM SULFONATE [Concomitant]
     Dosage: 100 MG, UNK
     Dates: start: 20090701, end: 20090701
  38. METHYLPREDNISOLONE SODIUM SUCCINATE [Concomitant]
     Dosage: 40 MG, QD
     Dates: start: 20090630, end: 20090701
  39. FUROSEMIDE [Concomitant]
     Indication: PRODUCT USED FOR UNKNOWN INDICATION
     Dosage: UNK
     Dates: start: 20090625, end: 20090626
  40. CARBAZOCHROME SODIUM SULFONATE [Concomitant]
     Indication: HAEMOSTASIS
     Dosage: 90 MG, QD
     Route: 048
     Dates: start: 20090609, end: 20090629
  41. CARBAZOCHROME SODIUM SULFONATE [Concomitant]
     Dosage: 100 MG, UNK
     Dates: start: 20090701, end: 20090701
  42. FAMOTIDINE [Concomitant]
     Dosage: UNK
     Dates: start: 20090613, end: 20090713
  43. TRANEXAMIC ACID [Concomitant]
     Indication: HAEMOSTASIS
     Dosage: UNK
     Dates: start: 20090613, end: 20090629
  44. CEFEPIME HYDROCHLORIDE [Concomitant]
     Indication: PRODUCT USED FOR UNKNOWN INDICATION
     Dosage: 1 G, TID
     Dates: start: 20090610, end: 20090617
  45. HEPARIN SODIUM [Concomitant]
     Dosage: UNK
     Dates: start: 20090630, end: 20090703
  46. DIAZEPAM [Concomitant]
     Indication: PRODUCT USED FOR UNKNOWN INDICATION
     Dosage: UNK
     Dates: start: 20090629, end: 20090629

REACTIONS (3)
  - PNEUMONIA [None]
  - HERPES ZOSTER [None]
  - CARDIAC FAILURE [None]
